FAERS Safety Report 6473662-5 (Version None)
Quarter: 2009Q4

REPORT INFORMATION
  Report Type: 
  Country: None (occurrence: None)
  Receive Date: 20091204
  Receipt Date: 20091127
  Transmission Date: 20100525
  Serious: Yes (Other)
  Sender: FDA-Public Use
  Company Number: BR-JNJFOC-20091200196

PATIENT
  Age: 74 Year
  Sex: Male
  Weight: 52 kg

DRUGS (4)
  1. TYLEX [Suspect]
     Indication: BACK PAIN
     Route: 065
     Dates: start: 20091126, end: 20091126
  2. CAPTOPRIL [Concomitant]
     Route: 065
     Dates: start: 19990101
  3. ACETYLSALICYLIC ACID [Concomitant]
     Route: 065
     Dates: start: 19990101
  4. DAONIL [Concomitant]
     Route: 065
     Dates: start: 19990101

REACTIONS (5)
  - COMMUNICATION DISORDER [None]
  - DISORIENTATION [None]
  - DIZZINESS [None]
  - MEMORY IMPAIRMENT [None]
  - NAUSEA [None]
